FAERS Safety Report 8438579-5 (Version None)
Quarter: 2012Q2

REPORT INFORMATION
  Report Type: 
  Country: None (occurrence: None)
  Receive Date: 20120615
  Receipt Date: 20120611
  Transmission Date: 20120825
  Serious: No
  Sender: FDA-Public Use
  Company Number: US-PFIZER INC-2012141121

PATIENT
  Sex: Female
  Weight: 63 kg

DRUGS (2)
  1. LYRICA [Suspect]
     Indication: FIBROMYALGIA
     Dosage: 150 MG, DAILY
  2. CELEXA [Concomitant]
     Dosage: 40 MG, DAILY

REACTIONS (1)
  - THERAPEUTIC RESPONSE UNEXPECTED [None]
